FAERS Safety Report 7252243-X (Version None)
Quarter: 2011Q1

REPORT INFORMATION
  Report Type: 
  Country: None (occurrence: None)
  Receive Date: 20110129
  Receipt Date: 20100111
  Transmission Date: 20110831
  Serious: No
  Sender: FDA-Public Use
  Company Number: US-ABBOTT-09P-163-0614988-00

PATIENT
  Sex: Female
  Weight: 90.8 kg

DRUGS (5)
  1. HUMIRA [Suspect]
     Indication: RHEUMATOID ARTHRITIS
     Dates: start: 20091001, end: 20091218
  2. METOPROLOL [Concomitant]
     Indication: HYPERTENSION
  3. BENICAR [Concomitant]
     Indication: HYPERTENSION
     Dosage: 20/12.5 30
  4. PREDNISONE [Concomitant]
     Indication: RHEUMATOID ARTHRITIS
  5. VICODIN [Concomitant]
     Indication: RHEUMATOID ARTHRITIS

REACTIONS (6)
  - DRUG INEFFECTIVE [None]
  - SKIN ULCER [None]
  - PAIN OF SKIN [None]
  - FUNGAL INFECTION [None]
  - DRY SKIN [None]
  - UMBILICAL ERYTHEMA [None]
